FAERS Safety Report 10752268 (Version 1)
Quarter: 2015Q1

REPORT INFORMATION
  Report Type: Spontaneous
  Country: GB (occurrence: GB)
  Receive Date: 20150130
  Receipt Date: 20150130
  Transmission Date: 20150721
  Serious: Yes (Hospitalization, Other)
  Sender: FDA-Public Use
  Company Number: GB-ALLERGAN-1501342US

PATIENT

DRUGS (1)
  1. PRED FORTE [Suspect]
     Active Substance: PREDNISOLONE ACETATE
     Indication: PRODUCT USED FOR UNKNOWN INDICATION
     Dosage: UNK
     Route: 047
     Dates: start: 201311

REACTIONS (5)
  - Eye operation [Unknown]
  - Cataract [Recovered/Resolved]
  - Vision blurred [Unknown]
  - Ophthalmic herpes simplex [Unknown]
  - Eye pain [Unknown]

NARRATIVE: CASE EVENT DATE: 2013
